FAERS Safety Report 6220800-5 (Version None)
Quarter: 2009Q2

REPORT INFORMATION
  Report Type: 
  Country: None (occurrence: None)
  Receive Date: 20090610
  Receipt Date: 20090602
  Transmission Date: 20091009
  Serious: Yes (Other)
  Sender: FDA-Public Use
  Company Number: US-BAYER-200922432NA

PATIENT
  Age: 26 Year
  Sex: Female
  Weight: 64 kg

DRUGS (5)
  1. MIRENA [Suspect]
     Indication: CONTRACEPTION
     Dosage: CONTINUOUS DELIVERY
     Route: 015
     Dates: start: 20050701
  2. THYROID MEDICATION NOS [Concomitant]
  3. VITAMINS [Concomitant]
  4. ALDACTONE [Concomitant]
  5. ANTIBIOTICS NOS [Concomitant]

REACTIONS (6)
  - ACNE [None]
  - BACK PAIN [None]
  - BLOOD URINE PRESENT [None]
  - IUCD COMPLICATION [None]
  - KIDNEY INFECTION [None]
  - WEIGHT INCREASED [None]
